FAERS Safety Report 21134370 (Version 42)
Quarter: 2023Q4

REPORT INFORMATION
  Report Type: Spontaneous
  Country: JP (occurrence: JP)
  Receive Date: 20220726
  Receipt Date: 20231206
  Transmission Date: 20240110
  Serious: Yes (Life-Threatening, Hospitalization, Other)
  Sender: FDA-Public Use
  Company Number: JP-BRISTOL-MYERS SQUIBB COMPANY-2022-079985

PATIENT
  Age: 72 Year
  Sex: Male
  Weight: 70.9 kg

DRUGS (54)
  1. YERVOY [Suspect]
     Active Substance: IPILIMUMAB
     Indication: Non-small cell lung cancer recurrent
     Route: 041
     Dates: start: 20210406, end: 20210521
  2. OPDIVO [Suspect]
     Active Substance: NIVOLUMAB
     Indication: Non-small cell lung cancer recurrent
     Route: 041
     Dates: start: 20210406, end: 20210521
  3. PACLITAXEL [Suspect]
     Active Substance: PACLITAXEL
     Indication: Non-small cell lung cancer recurrent
     Route: 041
     Dates: start: 20210406, end: 20210427
  4. CARBOPLATIN [Suspect]
     Active Substance: CARBOPLATIN
     Indication: Non-small cell lung cancer recurrent
     Route: 041
     Dates: start: 20210406, end: 20210427
  5. ATOVAQUONE [Suspect]
     Active Substance: ATOVAQUONE
     Indication: Product used for unknown indication
     Dates: start: 20210901
  6. VFEND [Suspect]
     Active Substance: VORICONAZOLE
     Indication: Bronchopulmonary aspergillosis
     Dates: start: 20210729
  7. VFEND [Suspect]
     Active Substance: VORICONAZOLE
  8. VFEND [Suspect]
     Active Substance: VORICONAZOLE
     Dates: start: 20210805, end: 20210827
  9. VFEND [Suspect]
     Active Substance: VORICONAZOLE
     Dates: start: 20210901
  10. METHYLPREDNISOLONE [Suspect]
     Active Substance: METHYLPREDNISOLONE
     Indication: Acute kidney injury
     Dates: start: 20210621, end: 20210623
  11. METHYLPREDNISOLONE [Suspect]
     Active Substance: METHYLPREDNISOLONE
     Dates: start: 20210624, end: 20210705
  12. METHYLPREDNISOLONE [Suspect]
     Active Substance: METHYLPREDNISOLONE
     Dates: start: 20210706, end: 20210712
  13. PREDONINE [Suspect]
     Active Substance: PREDNISOLONE
     Indication: Immune-mediated lung disease
     Dosage: ORAL DRUG UNSPECIFIED FORM
     Route: 048
     Dates: start: 20210607
  14. PREDONINE [Suspect]
     Active Substance: PREDNISOLONE
     Dosage: ORAL DRUG UNSPECIFIED FORM
     Route: 048
     Dates: start: 20210614, end: 20210620
  15. PREDONINE [Suspect]
     Active Substance: PREDNISOLONE
     Dosage: ORAL DRUG UNSPECIFIED FORM
     Route: 048
     Dates: start: 20210713, end: 20210719
  16. PREDONINE [Suspect]
     Active Substance: PREDNISOLONE
     Dosage: ORAL DRUG UNSPECIFIED FORM
     Route: 048
     Dates: start: 20210720, end: 20210726
  17. PREDONINE [Suspect]
     Active Substance: PREDNISOLONE
     Dosage: ORAL DRUG UNSPECIFIED FORM
     Route: 048
     Dates: start: 20210727, end: 20210802
  18. PREDONINE [Suspect]
     Active Substance: PREDNISOLONE
     Dosage: ORAL DRUG UNSPECIFIED FORM
     Route: 048
     Dates: start: 20210803, end: 20210816
  19. PREDONINE [Suspect]
     Active Substance: PREDNISOLONE
     Dosage: ORAL DRUG UNSPECIFIED FORM
     Route: 048
     Dates: start: 20210817, end: 20210823
  20. PREDONINE [Suspect]
     Active Substance: PREDNISOLONE
     Dosage: ORAL DRUG UNSPECIFIED FORM
     Route: 048
     Dates: start: 20210824
  21. PREDONINE [Suspect]
     Active Substance: PREDNISOLONE
     Dosage: ORAL DRUG UNSPECIFIED FORM
     Route: 048
     Dates: start: 20210531
  22. REMICADE [Suspect]
     Active Substance: INFLIXIMAB
     Indication: Acute kidney injury
     Dates: start: 20210625, end: 20210625
  23. REMICADE [Suspect]
     Active Substance: INFLIXIMAB
     Dates: start: 20210709, end: 20210709
  24. ACYCLOVIR [Concomitant]
     Active Substance: ACYCLOVIR
     Indication: Product used for unknown indication
     Route: 041
  25. VALACYCLOVIR HYDROCHLORIDE [Concomitant]
     Active Substance: VALACYCLOVIR HYDROCHLORIDE
     Indication: Product used for unknown indication
     Route: 048
  26. TADALAFIL [Concomitant]
     Active Substance: TADALAFIL
     Indication: Product used for unknown indication
     Route: 048
  27. NESINA [Concomitant]
     Active Substance: ALOGLIPTIN BENZOATE
     Indication: Product used for unknown indication
     Route: 048
     Dates: end: 20210610
  28. CARBOCYSTEINE [Concomitant]
     Active Substance: CARBOCYSTEINE
     Indication: Product used for unknown indication
     Route: 048
  29. REBAMIPIDE [Concomitant]
     Active Substance: REBAMIPIDE
     Indication: Prophylaxis
     Dosage: Q8H
     Route: 048
  30. LINAGLIPTIN [Concomitant]
     Active Substance: LINAGLIPTIN
     Indication: Product used for unknown indication
     Route: 048
     Dates: start: 20210611
  31. AMLODIPINE [Concomitant]
     Active Substance: AMLODIPINE BESYLATE
     Indication: Product used for unknown indication
     Route: 048
  32. AMLODIPINE [Concomitant]
     Active Substance: AMLODIPINE BESYLATE
     Route: 048
  33. AMLODIPINE [Concomitant]
     Active Substance: AMLODIPINE BESYLATE
     Route: 048
  34. AMLODIPINE [Concomitant]
     Active Substance: AMLODIPINE BESYLATE
     Route: 048
  35. AMLODIPINE [Concomitant]
     Active Substance: AMLODIPINE BESYLATE
     Route: 048
  36. AMLODIPINE [Concomitant]
     Active Substance: AMLODIPINE BESYLATE
     Route: 048
  37. AMLODIPINE [Concomitant]
     Active Substance: AMLODIPINE BESYLATE
     Route: 048
  38. AMLODIPINE [Concomitant]
     Active Substance: AMLODIPINE BESYLATE
     Route: 048
  39. AMLODIPINE [Concomitant]
     Active Substance: AMLODIPINE BESYLATE
     Route: 048
  40. AMLODIPINE [Concomitant]
     Active Substance: AMLODIPINE BESYLATE
     Route: 048
  41. AMLODIPINE [Concomitant]
     Active Substance: AMLODIPINE BESYLATE
     Route: 048
  42. AMLODIPINE [Concomitant]
     Active Substance: AMLODIPINE BESYLATE
     Route: 048
  43. AMLODIPINE [Concomitant]
     Active Substance: AMLODIPINE BESYLATE
     Route: 048
  44. AMLODIPINE [Concomitant]
     Active Substance: AMLODIPINE BESYLATE
     Route: 048
  45. AMLODIPINE [Concomitant]
     Active Substance: AMLODIPINE BESYLATE
     Route: 048
  46. AMLODIPINE [Concomitant]
     Active Substance: AMLODIPINE BESYLATE
     Route: 048
  47. AMLODIPINE [Concomitant]
     Active Substance: AMLODIPINE BESYLATE
     Route: 048
  48. AMLODIPINE [Concomitant]
     Active Substance: AMLODIPINE BESYLATE
     Route: 048
  49. AMLODIPINE [Concomitant]
     Active Substance: AMLODIPINE BESYLATE
     Route: 048
  50. AMLODIPINE [Concomitant]
     Active Substance: AMLODIPINE BESYLATE
     Route: 048
  51. AMLODIPINE [Concomitant]
     Active Substance: AMLODIPINE BESYLATE
     Route: 048
  52. AMLODIPINE [Concomitant]
     Active Substance: AMLODIPINE BESYLATE
     Route: 048
  53. AMLODIPINE [Concomitant]
     Active Substance: AMLODIPINE BESYLATE
     Route: 048
  54. AMLODIPINE [Concomitant]
     Active Substance: AMLODIPINE BESYLATE
     Route: 048

REACTIONS (18)
  - Immune-mediated lung disease [Recovering/Resolving]
  - Acute kidney injury [Recovered/Resolved with Sequelae]
  - Thrombocytopenia [Recovered/Resolved]
  - Immune-mediated nephritis [Recovered/Resolved with Sequelae]
  - Oral herpes [Unknown]
  - Aspergillus infection [Unknown]
  - Blood creatinine increased [Recovering/Resolving]
  - Herpes simplex pneumonia [Unknown]
  - Device related infection [Recovering/Resolving]
  - Constipation [Not Recovered/Not Resolved]
  - Rash maculo-papular [Recovering/Resolving]
  - Folliculitis [Recovered/Resolved]
  - White blood cell count decreased [Unknown]
  - Neutrophil count decreased [Unknown]
  - Bronchopulmonary aspergillosis [Recovering/Resolving]
  - Herpes simplex [Recovering/Resolving]
  - Oral candidiasis [Unknown]
  - Haemophagocytic lymphohistiocytosis [Recovered/Resolved]

NARRATIVE: CASE EVENT DATE: 20210407
